FAERS Safety Report 17818284 (Version 1)
Quarter: 2020Q2

REPORT INFORMATION
  Report Type: Spontaneous
  Country: PL (occurrence: PL)
  Receive Date: 20200522
  Receipt Date: 20200522
  Transmission Date: 20200714
  Serious: Yes (Hospitalization)
  Sender: FDA-Public Use
  Company Number: PL-NAPPMUNDI-GBR-2020-0076852

PATIENT
  Age: 69 Year
  Sex: Male

DRUGS (1)
  1. OXYCODONE HYDROCHLORIDE. [Suspect]
     Active Substance: OXYCODONE HYDROCHLORIDE
     Indication: ANALGESIC THERAPY
     Dosage: 1 MG, UNK (1 MG PER BOLUS, LOCK OUT TIME AT 7 MIN)
     Route: 042

REACTIONS (1)
  - Respiratory failure [Unknown]
